FAERS Safety Report 6623113-2 (Version None)
Quarter: 2010Q1

REPORT INFORMATION
  Report Type: 
  Country: None (occurrence: None)
  Receive Date: 20100310
  Receipt Date: 20091211
  Transmission Date: 20100710
  Serious: No
  Sender: FDA-Public Use
  Company Number: US-BIOGENIDEC-2009BI040813

PATIENT
  Sex: Female

DRUGS (1)
  1. AVONEX [Suspect]
     Indication: MULTIPLE SCLEROSIS
     Route: 030
     Dates: start: 00020307

REACTIONS (6)
  - ANXIETY [None]
  - DEPRESSED MOOD [None]
  - MULTIPLE SCLEROSIS [None]
  - PAIN [None]
  - SLUGGISHNESS [None]
  - STRESS [None]
